FAERS Safety Report 11143925 (Version 2)
Quarter: 2015Q2

REPORT INFORMATION
  Report Type: Spontaneous
  Country: JP (occurrence: JP)
  Receive Date: 20150526
  Receipt Date: 20150602
  Transmission Date: 20150821
  Serious: Yes (Death, Hospitalization, Other)
  Sender: FDA-Public Use
  Company Number: PHJP2015JP008293

PATIENT
  Age: 72 Year
  Sex: Male

DRUGS (6)
  1. YOKUKANSAN [Concomitant]
     Active Substance: HERBALS
     Indication: PRODUCT USED FOR UNKNOWN INDICATION
     Dosage: 1 DF, TID, BEFORE EACH MEAL
     Route: 048
  2. MEMANTINE HYDROCHLORIDE [Concomitant]
     Active Substance: MEMANTINE HYDROCHLORIDE
     Indication: PRODUCT USED FOR UNKNOWN INDICATION
     Dosage: 5 MG, QD (EVENING)
     Route: 065
  3. EXELON PATCH [Suspect]
     Active Substance: RIVASTIGMINE
     Indication: DEMENTIA ALZHEIMER^S TYPE
     Dosage: 6.9 MG/24HR (PATCH 7.5 CM2, 13.5 MG RIVASTIGMINE BASE)
     Route: 062
  4. VALPROATE NA [Concomitant]
     Indication: PRODUCT USED FOR UNKNOWN INDICATION
     Dosage: 200 MG, BID (MORNING AND EVENING)
     Route: 065
  5. EXELON PATCH [Suspect]
     Active Substance: RIVASTIGMINE
     Dosage: 9.5 MG/24HR (PATCH 10 CM2, 18 MG DAILY RIVASTIGMINE BASE)
     Route: 062
     Dates: end: 201209
  6. MEMANTINE HYDROCHLORIDE [Concomitant]
     Active Substance: MEMANTINE HYDROCHLORIDE
     Dosage: 10 MG, UNK
     Route: 065

REACTIONS (9)
  - Pneumonia [Recovered/Resolved]
  - Aspiration [Unknown]
  - Death [Fatal]
  - Aggression [Recovered/Resolved]
  - Restlessness [Unknown]
  - Feeding disorder [Unknown]
  - Pneumonia [Recovering/Resolving]
  - Constipation [Unknown]
  - Agitation [Recovered/Resolved]

NARRATIVE: CASE EVENT DATE: 201209
